FAERS Safety Report 8429092-X (Version None)
Quarter: 2012Q2

REPORT INFORMATION
  Report Type: 
  Country: None (occurrence: None)
  Receive Date: 20120612
  Receipt Date: 20120602
  Transmission Date: 20120825
  Serious: No
  Sender: FDA-Public Use
  Company Number: DE-SANOFI-AVENTIS-2012SA039251

PATIENT
  Age: 22 Year
  Sex: Female

DRUGS (2)
  1. LEFLUNOMIDE [Suspect]
     Indication: TAKAYASU'S ARTERITIS
     Route: 065
  2. HUMIRA [Concomitant]
     Indication: TAKAYASU'S ARTERITIS
     Route: 058

REACTIONS (1)
  - MATERNAL EXPOSURE DURING PREGNANCY [None]
